FAERS Safety Report 9217192 (Version 3)
Quarter: 2013Q3

REPORT INFORMATION
  Report Type: Spontaneous
  Country: US (occurrence: US)
  Receive Date: 20130408
  Receipt Date: 20130808
  Transmission Date: 20140515
  Serious: Yes (Other)
  Sender: FDA-Public Use
  Company Number: US-ROCHE-1205130

PATIENT
  Age: 25 Year
  Sex: Female

DRUGS (6)
  1. CELLCEPT [Suspect]
     Indication: IMMUNOSUPPRESSION
     Dosage: 1000 MG IN MORMING, 500MG AT NIGHT
     Route: 048
     Dates: start: 20020607, end: 20130226
  2. CELLCEPT [Suspect]
     Route: 048
     Dates: start: 20050101, end: 20130201
  3. CELLCEPT [Suspect]
     Route: 048
     Dates: start: 20050101, end: 20130201
  4. TACROLIMUS [Concomitant]
     Indication: IMMUNOSUPPRESSION
     Route: 048
     Dates: start: 20020607
  5. ASPIRIN [Concomitant]
  6. LIPITOR [Concomitant]
     Route: 065
     Dates: start: 20120730, end: 2013

REACTIONS (2)
  - Abortion spontaneous [Recovered/Resolved]
  - Exposure during pregnancy [Unknown]
